FAERS Safety Report 4696069-X (Version None)
Quarter: 2005Q2

REPORT INFORMATION
  Report Type: 
  Country: None (occurrence: None)
  Receive Date: 20050620
  Receipt Date: 20050603
  Transmission Date: 20051028
  Serious: Yes (Hospitalization)
  Sender: FDA-Public Use
  Company Number: 2005JP001162

PATIENT
  Age: 69 Year
  Sex: Male

DRUGS (3)
  1. PROGRAF [Suspect]
     Indication: RENAL TRANSPLANT
  2. MYCOPHENOLATE MOFETIL (MYCOPHENOLATE MOFETIL) [Concomitant]
  3. MIZORIBINE (MIZORIBINE) [Concomitant]

REACTIONS (3)
  - CYSTITIS [None]
  - CYTOMEGALOVIRUS ENTEROCOLITIS [None]
  - DIABETES MELLITUS [None]
